FAERS Safety Report 24413362 (Version 1)
Quarter: 2024Q4

REPORT INFORMATION
  Report Type: Spontaneous
  Country: US (occurrence: None)
  Receive Date: 20241008
  Receipt Date: 20241008
  Transmission Date: 20250115
  Serious: Yes (Other)
  Sender: Public
  Company Number: None

PATIENT
  Age: 60 Year
  Sex: Female
  Weight: 44.55 kg

DRUGS (5)
  1. STELARA [Suspect]
     Active Substance: USTEKINUMAB
     Indication: Crohn^s disease
     Dates: start: 20240930
  2. NEXIUM [Concomitant]
     Active Substance: ESOMEPRAZOLE MAGNESIUM
  3. iron supplement [Concomitant]
  4. Ca-Mg citrate [Concomitant]
  5. PROBIOTICS NOS [Concomitant]
     Active Substance: PROBIOTICS NOS

REACTIONS (7)
  - Crohn^s disease [None]
  - Condition aggravated [None]
  - Joint swelling [None]
  - Arthralgia [None]
  - Joint swelling [None]
  - Loss of personal independence in daily activities [None]
  - Sleep disorder [None]

NARRATIVE: CASE EVENT DATE: 20241001
